FAERS Safety Report 4922376-9 (Version None)
Quarter: 2006Q1

REPORT INFORMATION
  Report Type: 
  Country: None (occurrence: None)
  Receive Date: 20060221
  Receipt Date: 20060207
  Transmission Date: 20060701
  Serious: Yes (Death, Hospitalization)
  Sender: FDA-Public Use
  Company Number: 2006013590

PATIENT
  Age: 84 Year
  Sex: Female

DRUGS (8)
  1. ZOLOFT [Suspect]
     Indication: DEPRESSION
     Dosage: )1 IN 1D), ORAL
     Route: 048
     Dates: end: 20051207
  2. ARICEPT [Suspect]
     Indication: DEMENTIA ALZHEIMER'S TYPE
     Dosage: 10 MG (10 MG, 1 IN 1 D), ORAL
     Route: 048
     Dates: start: 20050901, end: 20051207
  3. COAPROVEL (HYDROCHLOROTHIAZIDE, IRBESARTAN) [Suspect]
     Indication: HYPERTENSION
     Dosage: 300 MG (300 MG, 1 IN 1 D), ORAL
     Route: 048
     Dates: end: 20051207
  4. LERCAN (LERCANIDIPINE HYDROCHLORIDE) [Suspect]
     Indication: HYPERTENSION
     Dosage: 10 MG (10 MG, 1 IN 1 D), ORAL
     Route: 048
     Dates: end: 20051207
  5. MEPRONIZINE (ACEPROMETAZINE, MEPROBAMATE) [Suspect]
     Indication: ILL-DEFINED DISORDER
     Dosage: (1 IN 1 D), ORAL
     Route: 048
     Dates: start: 20050801, end: 20051207
  6. REPAGLINIDE (REPAGLINIDE) [Concomitant]
  7. HYPERIUM (RILMENIDINE) [Concomitant]
  8. TIAPRIDAL (TIAPRIDE) [Concomitant]

REACTIONS (7)
  - AMMONIA INCREASED [None]
  - DEPRESSED LEVEL OF CONSCIOUSNESS [None]
  - GENERAL PHYSICAL CONDITION ABNORMAL [None]
  - HEPATITIS FULMINANT [None]
  - HEPATOMEGALY [None]
  - PNEUMONIA ASPIRATION [None]
  - RESPIRATORY DISTRESS [None]
